FAERS Safety Report 14367601 (Version 1)
Quarter: 2018Q1

REPORT INFORMATION
  Report Type: Spontaneous
  Country: FR (occurrence: FR)
  Receive Date: 20180109
  Receipt Date: 20180109
  Transmission Date: 20180509
  Serious: Yes (Death, Other)
  Sender: FDA-Public Use
  Company Number: FR-PFIZER INC-2018008136

PATIENT
  Age: 64 Year
  Sex: Female

DRUGS (10)
  1. CORTANCYL [Concomitant]
     Active Substance: PREDNISONE
     Dosage: UNK
     Dates: start: 20171211, end: 20171213
  2. KARDEGIC [Concomitant]
     Active Substance: ASPIRIN DL-LYSINE
     Dosage: UNK
     Dates: end: 20171213
  3. CORDARONE [Suspect]
     Active Substance: AMIODARONE HYDROCHLORIDE
     Indication: ATRIAL FIBRILLATION
     Dosage: 150 MG, 2X/DAY
     Route: 041
     Dates: start: 20171210, end: 20171212
  4. ATORVASTATINE ARROW [Concomitant]
     Active Substance: ATORVASTATIN
     Dosage: UNK
     Dates: end: 20171213
  5. FUROSEMIDE RENAUDIN [Concomitant]
     Active Substance: FUROSEMIDE
     Dosage: UNK
     Dates: start: 20171208, end: 20171215
  6. VISIPAQUE [Suspect]
     Active Substance: IODIXANOL
     Indication: COMPUTERISED TOMOGRAM
     Dosage: 1 DOSAGE FORM;TOTAL
     Route: 042
     Dates: start: 20171205, end: 20171205
  7. NORADRENALINE [Concomitant]
     Active Substance: NOREPINEPHRINE
     Dosage: UNK
     Dates: start: 20171208, end: 20171219
  8. NOVORAPID [Concomitant]
     Active Substance: INSULIN ASPART
     Dosage: UNK
     Dates: end: 20171220
  9. CORDARONE [Suspect]
     Active Substance: AMIODARONE HYDROCHLORIDE
     Indication: ATRIAL FIBRILLATION
     Dosage: 9 DF, DAILY
     Route: 048
     Dates: start: 20171211, end: 20171213
  10. GABAPENTINE ARROW [Concomitant]
     Active Substance: GABAPENTIN
     Dosage: UNK
     Dates: start: 20171210, end: 20171215

REACTIONS (2)
  - Hyperthyroidism [Not Recovered/Not Resolved]
  - Multiple organ dysfunction syndrome [Fatal]

NARRATIVE: CASE EVENT DATE: 20171213
